FAERS Safety Report 11604074 (Version 3)
Quarter: 2015Q4

REPORT INFORMATION
  Report Type: Spontaneous
  Country: NO (occurrence: NO)
  Receive Date: 20151007
  Receipt Date: 20151105
  Transmission Date: 20160304
  Serious: Yes (Hospitalization, Disabling)
  Sender: FDA-Public Use
  Company Number: NO-WATSON-2015-21146

PATIENT
  Age: 58 Year
  Sex: Female

DRUGS (9)
  1. SOMAC [Concomitant]
     Active Substance: PANTOPRAZOLE SODIUM
     Indication: SMALL CELL LUNG CANCER
     Dosage: 40 MG, DAILY
     Route: 065
  2. MORPHINE [Concomitant]
     Active Substance: MORPHINE
     Indication: SMALL CELL LUNG CANCER
     Dosage: 10 MG, PRN
     Route: 065
  3. DUPHALAC [Concomitant]
     Active Substance: LACTULOSE
     Indication: SMALL CELL LUNG CANCER
     Dosage: 15 ML, BID
     Route: 048
  4. TARGINIQ ER [Concomitant]
     Active Substance: NALOXONE HYDROCHLORIDE\OXYCODONE HYDROCHLORIDE
     Indication: SMALL CELL LUNG CANCER
     Dosage: 7.5 MG, BID (5 MG OXYCODONE/2.5 MG NALOXONE)
     Route: 048
  5. ETOPOSIDE. [Suspect]
     Active Substance: ETOPOSIDE
     Indication: SMALL CELL LUNG CANCER
     Dosage: 150 MG, BID
     Route: 048
     Dates: start: 20150828, end: 20150830
  6. CETIRIZINE [Concomitant]
     Active Substance: CETIRIZINE HYDROCHLORIDE
     Indication: SMALL CELL LUNG CANCER
     Dosage: 10 MG, DAILY
     Route: 048
  7. CARBOPLATIN (UNKNOWN) [Suspect]
     Active Substance: CARBOPLATIN
     Indication: SMALL CELL LUNG CANCER
     Dosage: 640 MG, UNKNOWN
     Route: 041
     Dates: start: 20150827
  8. ETOPOSIDE (UNKNOWN) [Suspect]
     Active Substance: ETOPOSIDE
     Indication: SMALL CELL LUNG CANCER
     Dosage: 167 MG, UNKNOWN
     Route: 041
     Dates: start: 20150827
  9. MEDROL [Concomitant]
     Active Substance: METHYLPREDNISOLONE
     Indication: SMALL CELL LUNG CANCER
     Dosage: 16 MG, DAILY
     Route: 048

REACTIONS (2)
  - Spinal cord infarction [Recovering/Resolving]
  - Spinal cord paralysis [Recovering/Resolving]

NARRATIVE: CASE EVENT DATE: 20150904
